FAERS Safety Report 14763130 (Version 4)
Quarter: 2019Q3

REPORT INFORMATION
  Report Type: Report from Study
  Country: US (occurrence: US)
  Receive Date: 20180416
  Receipt Date: 20190703
  Transmission Date: 20191004
  Serious: Yes (Other)
  Sender: FDA-Public Use
  Company Number: PHEH2018US013147

PATIENT
  Sex: Female

DRUGS (1)
  1. AZOPT [Suspect]
     Active Substance: BRINZOLAMIDE
     Indication: GLAUCOMA
     Dosage: 1 GTT, TID, OS (LEFT EYE)
     Route: 065

REACTIONS (4)
  - Blindness [Unknown]
  - Retinal artery occlusion [Unknown]
  - Visual impairment [Unknown]
  - Recurrent cancer [Not Recovered/Not Resolved]
